FAERS Safety Report 4471872-X (Version None)
Quarter: 2004Q4

REPORT INFORMATION
  Report Type: 
  Country: None (occurrence: None)
  Receive Date: 20041006
  Receipt Date: 20040921
  Transmission Date: 20050328
  Serious: Yes (Hospitalization, Disabling, Other)
  Sender: FDA-Public Use
  Company Number: 2004-0007539

PATIENT
  Age: 59 Year
  Sex: Male
  Weight: 56 kg

DRUGS (7)
  1. VIREAD [Suspect]
     Indication: HIV INFECTION
     Dosage: 300 MG, 1 IN 1 D, ORAL
     Route: 048
     Dates: start: 20030905, end: 20040917
  2. VIDEX EC [Concomitant]
  3. KALETRA [Concomitant]
  4. LORTAB [Concomitant]
  5. PLAVIX [Concomitant]
  6. MARINOL [Concomitant]
  7. LIPITOR [Concomitant]

REACTIONS (7)
  - CAROTID ARTERY STENOSIS [None]
  - DIZZINESS [None]
  - HYPOPHOSPHATAEMIA [None]
  - MENTAL STATUS CHANGES [None]
  - NEPHROPATHY TOXIC [None]
  - PROTEINURIA [None]
  - RENAL FAILURE [None]
